FAERS Safety Report 21138333 (Version 1)
Quarter: 2022Q3

REPORT INFORMATION
  Report Type: Report from Study
  Country: US (occurrence: US)
  Receive Date: 20220727
  Receipt Date: 20220727
  Transmission Date: 20221027
  Serious: Yes (Hospitalization)
  Sender: FDA-Public Use
  Company Number: US-JNJFOC-20220526749

PATIENT
  Age: 50 Year
  Sex: Male
  Weight: 45.5 kg

DRUGS (9)
  1. SELEXIPAG [Suspect]
     Active Substance: SELEXIPAG
     Indication: Pulmonary hypertension
     Dosage: 2 TIMES DAILY
     Route: 048
  2. SELEXIPAG [Suspect]
     Active Substance: SELEXIPAG
     Indication: Pulmonary arterial hypertension
     Dosage: 2 TIMES DAILY
     Route: 048
  3. SELEXIPAG [Suspect]
     Active Substance: SELEXIPAG
     Dosage: 2 TIMES DAILY
     Route: 048
  4. REMODULIN [Suspect]
     Active Substance: TREPROSTINIL
     Indication: Product used for unknown indication
     Route: 058
  5. AMBRISENTAN [Concomitant]
     Active Substance: AMBRISENTAN
  6. WARFARIN [Concomitant]
     Active Substance: WARFARIN
  7. ADCIRCA [Concomitant]
     Active Substance: TADALAFIL
  8. LETAIRIS [Concomitant]
     Active Substance: AMBRISENTAN
  9. ELIQUIS [Concomitant]
     Active Substance: APIXABAN

REACTIONS (6)
  - Cardiac failure congestive [Unknown]
  - Dyspnoea [Unknown]
  - Abdominal pain upper [Unknown]
  - Injection site extravasation [Unknown]
  - Abdominal pain [Unknown]
  - Pain [Not Recovered/Not Resolved]

NARRATIVE: CASE EVENT DATE: 20220501
